FAERS Safety Report 12606904 (Version 1)
Quarter: 2016Q3

REPORT INFORMATION
  Report Type: Report from Study
  Country: US (occurrence: US)
  Receive Date: 20160729
  Receipt Date: 20160729
  Transmission Date: 20161109
  Serious: Yes (Hospitalization)
  Sender: FDA-Public Use
  Company Number: US-ABBVIE-16P-163-1686193-00

PATIENT
  Sex: Male
  Weight: 77.63 kg

DRUGS (2)
  1. IBUPROFEN. [Concomitant]
     Active Substance: IBUPROFEN
     Indication: PRODUCT USED FOR UNKNOWN INDICATION
     Route: 048
     Dates: start: 20160223
  2. VIEKIRA PAK [Suspect]
     Active Substance: DASABUVIR\OMBITASVIR\PARITAPREVIR\RITONAVIR
     Indication: HEPATITIS C
     Dosage: 12.5MG-75MG-50MG 1 TAB 1 DOSE PACK AS DIRECTED
     Route: 048
     Dates: start: 201604

REACTIONS (3)
  - Surgery [Unknown]
  - Road traffic accident [Unknown]
  - Weight decreased [Unknown]
